FAERS Safety Report 22068061 (Version 1)
Quarter: 2023Q1

REPORT INFORMATION
  Report Type: Spontaneous
  Country: BE (occurrence: BE)
  Receive Date: 20230307
  Receipt Date: 20230307
  Transmission Date: 20230418
  Serious: Yes (Other)
  Sender: FDA-Public Use
  Company Number: BE-BEH-2023155959

PATIENT
  Age: 72 Year
  Sex: Male

DRUGS (3)
  1. PRIVIGEN [Suspect]
     Active Substance: HUMAN IMMUNOGLOBULIN G
     Indication: Chronic inflammatory demyelinating polyradiculoneuropathy
     Dosage: 0.8 TO 1G/KG /6 WEEKS
     Route: 042
     Dates: start: 20221114, end: 20221118
  2. PRIVIGEN [Suspect]
     Active Substance: HUMAN IMMUNOGLOBULIN G
     Dosage: 0.8 TO 1G/KG /6 WEEKS
     Route: 042
     Dates: start: 20221221, end: 20221221
  3. PRIVIGEN [Suspect]
     Active Substance: HUMAN IMMUNOGLOBULIN G
     Dosage: 0.8 TO 1G/KG /6 WEEKS
     Route: 042
     Dates: start: 20230118, end: 20230118

REACTIONS (8)
  - Angina pectoris [Unknown]
  - Extrasystoles [Unknown]
  - Malaise [Unknown]
  - Influenza like illness [Recovering/Resolving]
  - Body temperature increased [Recovering/Resolving]
  - Chest pain [Unknown]
  - Chest pain [Unknown]
  - Palpitations [Unknown]

NARRATIVE: CASE EVENT DATE: 20221116
